FAERS Safety Report 6697834-X (Version None)
Quarter: 2010Q2

REPORT INFORMATION
  Report Type: 
  Country: None (occurrence: None)
  Receive Date: 20100427
  Receipt Date: 20100419
  Transmission Date: 20101027
  Serious: Yes (Hospitalization)
  Sender: FDA-Public Use
  Company Number: CA-BIOGENIDEC-2010BI013285

PATIENT
  Age: 35 Year
  Sex: Male

DRUGS (1)
  1. TYSABRI [Suspect]
     Indication: MULTIPLE SCLEROSIS
     Route: 042
     Dates: start: 20090511

REACTIONS (5)
  - ABASIA [None]
  - MUSCLE RIGIDITY [None]
  - PERIPHERAL COLDNESS [None]
  - URINARY INCONTINENCE [None]
  - VISUAL ACUITY REDUCED [None]
